FAERS Safety Report 12407762 (Version 1)
Quarter: 2016Q2

REPORT INFORMATION
  Report Type: Other
  Country: US (occurrence: US)
  Receive Date: 20160526
  Receipt Date: 20160526
  Transmission Date: 20160815
  Serious: No
  Sender: FDA-Public Use
  Company Number: US-MYLANLABS-2015M1042051

PATIENT

DRUGS (1)
  1. ZOLPIDEM TARTRATE TABLETS, USP [Suspect]
     Active Substance: ZOLPIDEM TARTRATE
     Dosage: UNK

REACTIONS (1)
  - Insomnia [Unknown]
